FAERS Safety Report 5398026-7 (Version None)
Quarter: 2007Q3

REPORT INFORMATION
  Report Type: 
  Country: None (occurrence: None)
  Receive Date: 20070726
  Receipt Date: 20070602
  Transmission Date: 20080115
  Serious: Yes (Death)
  Sender: FDA-Public Use
  Company Number: US-PURDUE-USA_2007_0028350

PATIENT
  Age: 73 Year
  Sex: Female

DRUGS (1)
  1. OXYCONTIN [Suspect]
     Indication: BACK PAIN
     Dates: start: 19970101, end: 20010501

REACTIONS (1)
  - CEREBROVASCULAR ACCIDENT [None]
